FAERS Safety Report 8514250-6 (Version None)
Quarter: 2012Q3

REPORT INFORMATION
  Report Type: 
  Country: None (occurrence: None)
  Receive Date: 20120717
  Receipt Date: 20120706
  Transmission Date: 20120928
  Serious: Yes (Hospitalization)
  Sender: FDA-Public Use
  Company Number: FR-PFIZER INC-2012169442

PATIENT
  Age: 89 Year
  Sex: Female

DRUGS (5)
  1. SIMVASTATIN [Suspect]
     Indication: HYPERCHOLESTEROLAEMIA
     Dosage: 200 MG, DAILY
     Route: 048
  2. LEVOTHYROXINE SODIUM [Suspect]
     Dosage: 100 MICROGRAMS, DAILY
     Route: 048
  3. IRBESARTAN [Concomitant]
     Dosage: UNK
  4. PREVISCAN [Suspect]
     Indication: HYPERTENSIVE CARDIOMYOPATHY
     Dosage: 1 DF, 1X/DAY
     Route: 048
     Dates: end: 20120527
  5. CORDARONE [Suspect]
     Indication: HYPERTENSIVE CARDIOMYOPATHY
     Dosage: 200MG, UNK
     Route: 048

REACTIONS (3)
  - CEREBRAL HAEMATOMA [None]
  - HAEMATOMA [None]
  - FALL [None]
